FAERS Safety Report 10028783 (Version 1)
Quarter: 2014Q1

REPORT INFORMATION
  Report Type: Spontaneous
  Country: US (occurrence: US)
  Receive Date: 20140321
  Receipt Date: 20140321
  Transmission Date: 20141002
  Serious: No
  Sender: FDA-Public Use
  Company Number: US-BAYER-2014-039989

PATIENT
  Age: 47 Year
  Sex: Female
  Weight: 97 kg

DRUGS (2)
  1. ALEVE TABLET [Suspect]
     Indication: RHEUMATOID ARTHRITIS
     Dosage: 2 DF, UNK
     Route: 048
     Dates: start: 2012
  2. METHOTREXATE [METHOTREXATE SODIUM] [Concomitant]

REACTIONS (3)
  - Off label use [None]
  - Incorrect drug administration duration [None]
  - Incorrect dose administered [None]
